FAERS Safety Report 23519119 (Version 2)
Quarter: 2024Q1

REPORT INFORMATION
  Report Type: Spontaneous
  Country: DE (occurrence: DE)
  Receive Date: 20240213
  Receipt Date: 20240305
  Transmission Date: 20240410
  Serious: Yes (Other)
  Sender: FDA-Public Use
  Company Number: DE-BRISTOL-MYERS SQUIBB COMPANY-2024-014997

PATIENT
  Age: 70 Year
  Sex: Male

DRUGS (2)
  1. ELIQUIS [Suspect]
     Active Substance: APIXABAN
     Indication: Deep vein thrombosis
     Route: 048
     Dates: start: 20240115, end: 20240118
  2. ELIQUIS [Suspect]
     Active Substance: APIXABAN
     Indication: Portal vein thrombosis

REACTIONS (2)
  - Rash [Recovered/Resolved]
  - Vascular rupture [Recovered/Resolved]

NARRATIVE: CASE EVENT DATE: 20240115
